FAERS Safety Report 23146426 (Version 3)
Quarter: 2024Q4

REPORT INFORMATION
  Report Type: Spontaneous
  Country: US (occurrence: US)
  Receive Date: 20231104
  Receipt Date: 20241024
  Transmission Date: 20250114
  Serious: No
  Sender: GLENMARK
  Company Number: US-GLENMARK PHARMACEUTICALS-2023GMK085206

PATIENT

DRUGS (3)
  1. RYALTRIS [Suspect]
     Active Substance: MOMETASONE FUROATE MONOHYDRATE\OLOPATADINE HYDROCHLORIDE
     Indication: Eustachian tube disorder
     Dosage: UNK, BID
     Route: 045
  2. RYALTRIS [Suspect]
     Active Substance: MOMETASONE FUROATE MONOHYDRATE\OLOPATADINE HYDROCHLORIDE
     Dosage: 2 DOSAGE FORM, BID (2 SPRAYS IN EACH NOSTRIL TWICE A DAY)
     Route: 045
  3. RYALTRIS [Suspect]
     Active Substance: MOMETASONE FUROATE MONOHYDRATE\OLOPATADINE HYDROCHLORIDE
     Dosage: 2 DOSAGE FORM, BID (2 SPRAYS IN EACH NOSTRIL TWICE A DAY)
     Route: 045

REACTIONS (6)
  - Drug dose omission by device [Unknown]
  - Product use in unapproved indication [Unknown]
  - Product communication issue [Unknown]
  - Device delivery system issue [Unknown]
  - Product tampering [Unknown]
  - Device issue [Unknown]
